FAERS Safety Report 6092459-1 (Version None)
Quarter: 2009Q1

REPORT INFORMATION
  Report Type: 
  Country: None (occurrence: None)
  Receive Date: 20090225
  Receipt Date: 20090218
  Transmission Date: 20090719
  Serious: Yes (Hospitalization, Other)
  Sender: FDA-Public Use
  Company Number: JP-MERCK-0902USA03421

PATIENT
  Age: 71 Year
  Sex: Male

DRUGS (4)
  1. DECADRON [Suspect]
     Indication: PROSTATE CANCER
     Route: 048
     Dates: start: 20080701, end: 20080101
  2. LEUPROLIDE ACETATE [Suspect]
     Indication: PROSTATE CANCER
     Route: 051
     Dates: start: 20070701
  3. ETHINYL ESTRADIOL [Suspect]
     Indication: PROSTATE CANCER
     Route: 048
     Dates: start: 20080901
  4. INSULIN [Concomitant]
     Indication: HYPERGLYCAEMIA
     Route: 058

REACTIONS (3)
  - DEEP VEIN THROMBOSIS [None]
  - HYPERGLYCAEMIA [None]
  - PULMONARY EMBOLISM [None]
